FAERS Safety Report 20711860 (Version 1)
Quarter: 2022Q2

REPORT INFORMATION
  Report Type: Spontaneous
  Country: AU (occurrence: AU)
  Receive Date: 20220414
  Receipt Date: 20220414
  Transmission Date: 20220720
  Serious: Yes (Hospitalization, Other)
  Sender: FDA-Public Use
  Company Number: AU-BAUSCH-BL-2022-009078

PATIENT
  Age: 20 Year
  Sex: Female

DRUGS (5)
  1. METRONIDAZOLE [Suspect]
     Active Substance: METRONIDAZOLE
     Indication: Product used for unknown indication
     Route: 065
  2. GENTAMICIN SULFATE [Suspect]
     Active Substance: GENTAMICIN SULFATE
     Indication: Product used for unknown indication
     Route: 065
  3. PENICILLIN G [Suspect]
     Active Substance: PENICILLIN G
     Indication: Product used for unknown indication
     Route: 065
  4. CEFAZOLIN [Suspect]
     Active Substance: CEFAZOLIN
     Indication: Product used for unknown indication
     Route: 065
  5. EPINEPHRINE [Concomitant]
     Active Substance: EPINEPHRINE
     Indication: Product used for unknown indication
     Route: 065

REACTIONS (5)
  - Anaphylactic reaction [Recovered/Resolved]
  - Coma scale abnormal [Recovered/Resolved]
  - Dysarthria [Recovered/Resolved]
  - Facial paralysis [Recovered/Resolved]
  - Swelling face [Recovered/Resolved]

NARRATIVE: CASE EVENT DATE: 20210630
